FAERS Safety Report 6818384-3 (Version None)
Quarter: 2010Q3

REPORT INFORMATION
  Report Type: 
  Country: None (occurrence: None)
  Receive Date: 20100706
  Receipt Date: 20080207
  Transmission Date: 20110219
  Serious: No
  Sender: FDA-Public Use
  Company Number: US-PFIZER INC-2007106556

PATIENT
  Sex: Female
  Weight: 42.727 kg

DRUGS (2)
  1. ZITHROMAX [Suspect]
     Indication: ORAL INFECTION
     Dates: start: 20071127, end: 20071127
  2. ZITHROMAX [Suspect]
     Indication: ORAL PAIN
     Dates: start: 20071127, end: 20071201

REACTIONS (7)
  - ABDOMINAL PAIN UPPER [None]
  - BLADDER DISORDER [None]
  - DRUG INEFFECTIVE [None]
  - ERYTHEMA [None]
  - MUSCLE SPASMS [None]
  - PRURITUS [None]
  - VAGINAL INFECTION [None]
